FAERS Safety Report 6047119-X (Version None)
Quarter: 2009Q1

REPORT INFORMATION
  Report Type: 
  Country: None (occurrence: None)
  Receive Date: 20090122
  Receipt Date: 20090113
  Transmission Date: 20090719
  Serious: Yes (Other)
  Sender: FDA-Public Use
  Company Number: PHHY2009AU02288

PATIENT
  Sex: Female

DRUGS (1)
  1. CLOZARIL [Suspect]
     Indication: SCHIZOPHRENIA
     Dosage: UNK
     Dates: start: 19940101

REACTIONS (8)
  - DELUSION [None]
  - DYSLIPIDAEMIA [None]
  - HALLUCINATION, AUDITORY [None]
  - HEART VALVE INCOMPETENCE [None]
  - HYPERTENSION [None]
  - MALAISE [None]
  - TYPE 2 DIABETES MELLITUS [None]
  - VENTRICULAR EXTRASYSTOLES [None]
